FAERS Safety Report 9257406 (Version 3)
Quarter: 2013Q3

REPORT INFORMATION
  Report Type: Spontaneous
  Country: US (occurrence: None)
  Receive Date: 20130423
  Receipt Date: 20130730
  Transmission Date: 20140515
  Serious: No
  Sender: FDA-Public Use
  Company Number: ACO_35587_2013

PATIENT
  Sex: Female

DRUGS (10)
  1. AMPYRA (DALFAMPRIDINE) TABLET, 10 MG [Suspect]
     Indication: PRODUCT USED FOR UNKNOWN INDICATION
     Dates: start: 20120618, end: 20130317
  2. FOSAMAX (ALENDRONATE SODIUM) [Concomitant]
  3. ASPIRIN (ACETYLSALICYLIC ACID) [Concomitant]
  4. COREG (CARVEDIOL) [Concomitant]
  5. KLONOPIN (CLONAZEPAM) [Concomitant]
  6. GILENYA (FINGOLIMOD HYDROCHLORIDE) [Concomitant]
  7. NEURONTIN (GABAPENTIN) [Concomitant]
  8. PRILOSEC [Concomitant]
  9. DETROL LA (TOLTERODINE L-TARTRATE) [Concomitant]
  10. PRAVACHOL (PRAVASTATIN SODIUM) [Concomitant]

REACTIONS (6)
  - Convulsion [None]
  - Burning sensation [None]
  - Syncope [None]
  - Fall [None]
  - Tremor [None]
  - Muscle spasms [None]
